FAERS Safety Report 6848487-9 (Version None)
Quarter: 2010Q3

REPORT INFORMATION
  Report Type: 
  Country: None (occurrence: None)
  Receive Date: 20100716
  Receipt Date: 20100707
  Transmission Date: 20110219
  Serious: Yes (Other)
  Sender: FDA-Public Use
  Company Number: GB-JNJFOC-20100702027

PATIENT
  Age: 44 Year
  Sex: Male

DRUGS (1)
  1. HALDOL [Suspect]
     Indication: PRODUCT USED FOR UNKNOWN INDICATION
     Route: 030

REACTIONS (10)
  - ABDOMINAL DISTENSION [None]
  - AGGRESSION [None]
  - APATHY [None]
  - BREAST ENLARGEMENT [None]
  - DRY MOUTH [None]
  - INJECTION SITE NODULE [None]
  - INSOMNIA [None]
  - MALAISE [None]
  - MUSCLE SPASMS [None]
  - TREMOR [None]
